FAERS Safety Report 7773215-2 (Version None)
Quarter: 2011Q3

REPORT INFORMATION
  Report Type: 
  Country: None (occurrence: None)
  Receive Date: 20110922
  Receipt Date: 20110913
  Transmission Date: 20111222
  Serious: No
  Sender: FDA-Public Use
  Company Number: US-B.I. PHARMACEUTICALS,INC./RIDGEFIELD-2011-BP-19151BP

PATIENT
  Age: 55 Year
  Sex: Female

DRUGS (9)
  1. FISH OIL [Concomitant]
     Dosage: 1000 MG
  2. LISINOPRIL [Concomitant]
     Dosage: 5 MG
  3. METOPROLOL TARTRATE [Concomitant]
     Dosage: 50 MG
  4. PRADAXA [Suspect]
     Indication: ANTICOAGULANT THERAPY
  5. METFORMIN HCL [Concomitant]
  6. PRADAXA [Suspect]
     Indication: ATRIAL FIBRILLATION
     Dosage: 300 MG
     Route: 048
     Dates: start: 20110718
  7. HYDROCHLOROTHIAZIDE [Concomitant]
     Dosage: 25 MG
  8. CITALOPRAM HYDROBROMIDE [Concomitant]
     Dosage: 20 MG
  9. GLYBURIDE [Concomitant]
     Dosage: 10 MG

REACTIONS (6)
  - DIZZINESS [None]
  - INSOMNIA [None]
  - HEADACHE [None]
  - DYSGEUSIA [None]
  - CONSTIPATION [None]
  - DYSPEPSIA [None]
